FAERS Safety Report 20941431 (Version 1)
Quarter: 2022Q2

REPORT INFORMATION
  Report Type: Spontaneous
  Country: CN (occurrence: CN)
  Receive Date: 20220610
  Receipt Date: 20220610
  Transmission Date: 20220720
  Serious: Yes (Other)
  Sender: FDA-Public Use
  Company Number: CN-SUN PHARMACEUTICAL INDUSTRIES LTD-2022R1-339824

PATIENT
  Age: 3 Year
  Sex: Male

DRUGS (2)
  1. ASPIRIN [Suspect]
     Active Substance: ASPIRIN
     Indication: Product used for unknown indication
     Dosage: 3 MILLIGRAM/KILOGRAM, DAILY
     Route: 065
  2. LATAMOXEF [Suspect]
     Active Substance: LATAMOXEF
     Indication: Product used for unknown indication
     Dosage: UNK
     Route: 065

REACTIONS (3)
  - Rash pruritic [Recovered/Resolved]
  - Eosinophil count increased [Recovered/Resolved]
  - Drug hypersensitivity [Recovered/Resolved]
